FAERS Safety Report 7440570-2 (Version None)
Quarter: 2011Q2

REPORT INFORMATION
  Report Type: 
  Country: None (occurrence: None)
  Receive Date: 20110427
  Receipt Date: 20110401
  Transmission Date: 20111010
  Serious: Yes (Other)
  Sender: FDA-Public Use
  Company Number: A0924604A

PATIENT
  Sex: Female
  Weight: 3.5 kg

DRUGS (2)
  1. SUMATRIPTAN [Suspect]
     Dosage: 6MG SINGLE DOSE
     Route: 064
     Dates: start: 20101031, end: 20101031
  2. SUMATRIPTAN [Suspect]
     Indication: MIGRAINE
     Dosage: 100MG SINGLE DOSE
     Route: 064
     Dates: start: 20101028, end: 20101028

REACTIONS (2)
  - DRUG EXPOSURE DURING PREGNANCY [None]
  - JAUNDICE NEONATAL [None]
